FAERS Safety Report 15559215 (Version 2)
Quarter: 2018Q4

REPORT INFORMATION
  Report Type: Report from Study
  Country: JP (occurrence: JP)
  Receive Date: 20181029
  Receipt Date: 20181115
  Transmission Date: 20190205
  Serious: Yes (Hospitalization)
  Sender: FDA-Public Use
  Company Number: JP-ROCHE-2206140

PATIENT
  Age: 69 Year
  Sex: Female
  Weight: 39 kg

DRUGS (17)
  1. PRIMPERAN [Concomitant]
     Active Substance: METOCLOPRAMIDE HYDROCHLORIDE
     Indication: VOMITING
     Dosage: DOSE INTERVAL UNCERTAINTY
     Route: 042
     Dates: start: 20181006, end: 20181006
  2. CAPECITABINE. [Suspect]
     Active Substance: CAPECITABINE
     Indication: CHOLANGIOCARCINOMA
     Dosage: AS PER PROTOCOL (TWICE DAILY FOR 2 WEEKS FOLLOWED BY A 1-WEEK REST PERIOD IN 3-WEEK CYCLES)
     Route: 048
     Dates: start: 2018, end: 201810
  3. C-CYSTEN [Concomitant]
     Active Substance: CARBOCYSTEINE
     Route: 048
     Dates: start: 20180920
  4. LOBU [Concomitant]
     Active Substance: LOBUCAVIR
     Indication: INFECTION
     Route: 048
     Dates: start: 20180926
  5. MAGNESIUM OXIDE. [Concomitant]
     Active Substance: MAGNESIUM OXIDE
     Indication: CONSTIPATION
     Route: 048
     Dates: start: 20180929
  6. SOLYUGEN G [Concomitant]
     Indication: VOMITING
     Dosage: DOSE INTERVAL UNCERTAINTY
     Route: 042
     Dates: start: 20181006, end: 20181008
  7. GLACTIV [Concomitant]
     Active Substance: SITAGLIPTIN
     Indication: DIABETES MELLITUS
     Dosage: DOSAGE IS UNCERTAIN.
     Route: 048
  8. GLIMEPIRIDE. [Concomitant]
     Active Substance: GLIMEPIRIDE
     Indication: DIABETES MELLITUS
     Route: 048
     Dates: start: 2012
  9. CEFON (JAPAN) [Concomitant]
     Indication: INFECTION
     Route: 048
     Dates: start: 20180926
  10. HARTMANN [Concomitant]
     Active Substance: CALCIUM CHLORIDE\POTASSIUM CHLORIDE\SODIUM CHLORIDE\SODIUM LACTATE
     Indication: INFESTATION
     Route: 065
  11. HERBAL NOS [Concomitant]
     Active Substance: HERBALS
     Indication: NAUSEA
     Route: 048
     Dates: start: 20180830
  12. HARTMANN [Concomitant]
     Active Substance: CALCIUM CHLORIDE\POTASSIUM CHLORIDE\SODIUM CHLORIDE\SODIUM LACTATE
     Indication: INFECTION
     Dosage: DOSE INTERVAL UNCERTAINTY
     Route: 042
     Dates: start: 20180926, end: 20180927
  13. NEXIUM [Concomitant]
     Active Substance: ESOMEPRAZOLE MAGNESIUM
     Indication: PROPHYLAXIS
     Dosage: DOSAGE IS UNCERTAIN.
     Route: 048
  14. FLAVITAN [Concomitant]
     Active Substance: FLAVIN ADENINE DINUCLEOTIDE
     Indication: VITAMIN B6 DEFICIENCY
     Route: 048
     Dates: start: 2018
  15. BLINDED VARLITINIB [Suspect]
     Active Substance: VARLITINIB
     Indication: CHOLANGIOCARCINOMA
     Dosage: DOSAGE WAS UNCERTAIN.
     Route: 048
     Dates: start: 20181002, end: 201810
  16. LOBU [Concomitant]
     Active Substance: LOBUCAVIR
     Indication: INFESTATION
  17. CEFON (JAPAN) [Concomitant]
     Indication: INFESTATION
     Route: 065

REACTIONS (1)
  - Cholangitis [Recovered/Resolved]

NARRATIVE: CASE EVENT DATE: 20181014
